FAERS Safety Report 6255109-7 (Version None)
Quarter: 2009Q3

REPORT INFORMATION
  Report Type: 
  Country: None (occurrence: None)
  Receive Date: 20090702
  Receipt Date: 20090623
  Transmission Date: 20100115
  Serious: Yes (Death, Hospitalization)
  Sender: FDA-Public Use
  Company Number: NL-TEVA-197267ISR

PATIENT
  Sex: Female

DRUGS (3)
  1. CISPLATIN [Suspect]
     Indication: TERATOMA
     Route: 042
     Dates: start: 20031222, end: 20040202
  2. BLEOMYCIN SULFATE [Suspect]
     Indication: TERATOMA
     Route: 042
     Dates: start: 20031222, end: 20040202
  3. ETOPOSIDE [Suspect]
     Indication: TERATOMA
     Route: 042
     Dates: start: 20031222, end: 20040202

REACTIONS (3)
  - PULMONARY EMBOLISM [None]
  - THROMBOPHLEBITIS [None]
  - URINARY TRACT INFECTION [None]
